FAERS Safety Report 24805462 (Version 1)
Quarter: 2025Q1

REPORT INFORMATION
  Report Type: Spontaneous
  Country: JP (occurrence: JP)
  Receive Date: 20250103
  Receipt Date: 20250103
  Transmission Date: 20250409
  Serious: Yes (Other)
  Sender: INTERCHEM
  Company Number: JP-HQ SPECIALTY-JP-2024INT000113

PATIENT
  Age: 1 Month
  Sex: Female

DRUGS (1)
  1. DEXMEDETOMIDINE HYDROCHLORIDE [Suspect]
     Active Substance: DEXMEDETOMIDINE HYDROCHLORIDE
     Indication: Sedation
     Route: 065

REACTIONS (2)
  - Neonatal respiratory depression [Unknown]
  - Product use issue [Unknown]

NARRATIVE: CASE EVENT DATE: 20211102
